FAERS Safety Report 13089107 (Version 1)
Quarter: 2017Q1

REPORT INFORMATION
  Report Type: Spontaneous
  Country: US (occurrence: US)
  Receive Date: 20170104
  Receipt Date: 20170104
  Transmission Date: 20170428
  Serious: Yes (Other)
  Sender: FDA-Public Use
  Company Number: None

PATIENT
  Age: 68 Year
  Sex: Male
  Weight: 69.75 kg

DRUGS (3)
  1. CLADRIBINE. [Concomitant]
     Active Substance: CLADRIBINE
  2. ALLOPURINOL. [Suspect]
     Active Substance: ALLOPURINOL
     Indication: PRODUCT USED FOR UNKNOWN INDICATION
     Route: 048
     Dates: start: 20160513, end: 20160517
  3. CHEMOTHERAPY [Concomitant]
     Active Substance: UNSPECIFIED INGREDIENT

REACTIONS (2)
  - Rash [None]
  - Pruritus [None]

NARRATIVE: CASE EVENT DATE: 20160513
